FAERS Safety Report 8232505-X (Version None)
Quarter: 2012Q1

REPORT INFORMATION
  Report Type: 
  Country: None (occurrence: None)
  Receive Date: 20120323
  Receipt Date: 20120313
  Transmission Date: 20120608
  Serious: Yes (Other)
  Sender: FDA-Public Use
  Company Number: US-ELI_LILLY_AND_COMPANY-US201203003920

PATIENT
  Sex: Male

DRUGS (4)
  1. HUMATROPE [Suspect]
     Indication: GROWTH HORMONE DEFICIENCY
     Dosage: 5.4 MG, 6 DAYS A WEEK
  2. NAPROXEN (ALEVE) [Concomitant]
     Indication: HEADACHE
     Dosage: UNK, UNKNOWN
  3. METFORMIN HCL [Concomitant]
     Dosage: UNK, UNKNOWN
  4. TYLENOL                                 /SCH/ [Concomitant]
     Dosage: UNK, UNKNOWN

REACTIONS (1)
  - EPILEPSY [None]
